FAERS Safety Report 5088203-7 (Version None)
Quarter: 2006Q3

REPORT INFORMATION
  Report Type: 
  Country: None (occurrence: None)
  Receive Date: 20060823
  Receipt Date: 20060823
  Transmission Date: 20061208
  Serious: No
  Sender: FDA-Public Use
  Company Number: None

PATIENT
  Age: 39 Year
  Sex: Female
  Weight: 79.3795 kg

DRUGS (1)
  1. DEXAMETHASONE [Suspect]
     Indication: ECZEMA
     Dosage: PROGRESSIVE DECREASE
     Dates: start: 20060729, end: 20060812

REACTIONS (17)
  - CHROMATURIA [None]
  - CONSTIPATION [None]
  - DIZZINESS [None]
  - DYSPHONIA [None]
  - FATIGUE [None]
  - HEADACHE [None]
  - HEART RATE INCREASED [None]
  - HYPERHIDROSIS [None]
  - INCREASED APPETITE [None]
  - IRRITABILITY [None]
  - JOINT SWELLING [None]
  - MUSCULAR WEAKNESS [None]
  - PHARYNGOLARYNGEAL PAIN [None]
  - POOR QUALITY SLEEP [None]
  - SWELLING [None]
  - VISION BLURRED [None]
  - WEIGHT INCREASED [None]
